FAERS Safety Report 20165703 (Version 3)
Quarter: 2022Q2

REPORT INFORMATION
  Report Type: Spontaneous
  Country: DE (occurrence: DE)
  Receive Date: 20211209
  Receipt Date: 20220411
  Transmission Date: 20220721
  Serious: Yes (Death, Other)
  Sender: FDA-Public Use
  Company Number: DE-009507513-2112DEU002313

PATIENT
  Sex: Male
  Weight: 62.7 kg

DRUGS (4)
  1. PEMBROLIZUMAB [Suspect]
     Active Substance: PEMBROLIZUMAB
     Indication: Oesophageal squamous cell carcinoma
     Dosage: 2 MILLIGRAM/KILOGRAM BODY WEIGHT, 3-WEEKLY
     Dates: start: 20150526, end: 20150526
  2. PEMBROLIZUMAB [Suspect]
     Active Substance: PEMBROLIZUMAB
     Dosage: 2 MILLIGRAM/KILOGRAM BODY WEIGHT, 3-WEEKLY
     Dates: start: 20150625, end: 20150625
  3. PEMBROLIZUMAB [Suspect]
     Active Substance: PEMBROLIZUMAB
     Dosage: 3 MILLIGRAM/KILOGRAM BODY WEIGHT, 3-WEEKLY
     Dates: start: 20150710, end: 201509
  4. PEMBROLIZUMAB [Suspect]
     Active Substance: PEMBROLIZUMAB
     Dosage: UNK, 3-WEEKLY
     Dates: end: 201510

REACTIONS (12)
  - Pneumonia [Fatal]
  - Malignant neoplasm progression [Fatal]
  - Tracheostomy [Unknown]
  - Gastrointestinal tube insertion [Unknown]
  - Gastrostomy [Unknown]
  - Stridor [Unknown]
  - Vocal cord paresis [Unknown]
  - General physical health deterioration [Unknown]
  - Therapeutic product effect decreased [Unknown]
  - Drug effective for unapproved indication [Unknown]
  - Product use in unapproved indication [Unknown]
  - Inappropriate schedule of product administration [Unknown]

NARRATIVE: CASE EVENT DATE: 20150101
